FAERS Safety Report 6466328-9 (Version None)
Quarter: 2009Q4

REPORT INFORMATION
  Report Type: 
  Country: None (occurrence: None)
  Receive Date: 20091202
  Receipt Date: 20091124
  Transmission Date: 20100525
  Serious: Yes (Death, Life-Threatening, Other)
  Sender: FDA-Public Use
  Company Number: RU-ROCHE-671568

PATIENT
  Age: 70 Year
  Sex: Female
  Weight: 50 kg

DRUGS (4)
  1. XELODA [Suspect]
     Indication: GASTRIC CANCER
     Dosage: GIVEN ON 1-14 DAYS EVERY 3 WEEKS
     Route: 065
     Dates: start: 20080123
  2. XELODA [Suspect]
     Dosage: DOSE REDUCED AT 25%
     Route: 065
  3. OXALIPLATIN [Suspect]
     Indication: GASTRIC CANCER
     Dosage: GIVEN DURING 2 HOURS ON FIRST DAY
     Route: 042
     Dates: start: 20080123
  4. IRINOTECAN HCL [Suspect]
     Indication: DRUG USE FOR UNKNOWN INDICATION
     Dosage: GIVEN TWO COURSES
     Route: 065
     Dates: start: 20081201, end: 20090201

REACTIONS (5)
  - HEPATIC FAILURE [None]
  - HYPERBILIRUBINAEMIA [None]
  - MALIGNANT NEOPLASM PROGRESSION [None]
  - PALMAR-PLANTAR ERYTHRODYSAESTHESIA SYNDROME [None]
  - PERIPHERAL SENSORY NEUROPATHY [None]
